FAERS Safety Report 6232708-X (Version None)
Quarter: 2009Q2

REPORT INFORMATION
  Report Type: 
  Country: None (occurrence: None)
  Receive Date: 20090617
  Receipt Date: 20090609
  Transmission Date: 20091009
  Serious: Yes (Hospitalization)
  Sender: FDA-Public Use
  Company Number: PHHO2009DE07097

PATIENT
  Sex: Male
  Weight: 64 kg

DRUGS (4)
  1. AMN107 AMN+CAP [Suspect]
     Indication: GASTROINTESTINAL STROMAL TUMOUR
     Dosage: 800 MG, UNK
     Route: 048
     Dates: start: 20090504, end: 20090603
  2. AMLODIPINE [Concomitant]
     Dosage: UNK
     Dates: start: 20060101
  3. DIOVAN [Concomitant]
     Dosage: UNK
     Dates: start: 20060101
  4. CONCOR PLUS [Concomitant]
     Dosage: UNK
     Dates: start: 20060101

REACTIONS (9)
  - ANAEMIA [None]
  - ASCITES [None]
  - BLOOD CREATININE INCREASED [None]
  - BLOOD LACTATE DEHYDROGENASE INCREASED [None]
  - DRUG INEFFECTIVE [None]
  - EASTERN COOPERATIVE ONCOLOGY GROUP PERFORMANCE STATUS WORSENED [None]
  - FATIGUE [None]
  - MALIGNANT NEOPLASM PROGRESSION [None]
  - RENAL IMPAIRMENT [None]
